FAERS Safety Report 23416843 (Version 1)
Quarter: 2024Q1

REPORT INFORMATION
  Report Type: Spontaneous
  Country: SK (occurrence: SK)
  Receive Date: 20240118
  Receipt Date: 20240118
  Transmission Date: 20240409
  Serious: Yes (Other)
  Sender: FDA-Public Use
  Company Number: SK-BELUPO-SafetyCase005541

PATIENT
  Age: 25 Year
  Sex: Female

DRUGS (10)
  1. LACOSAMIDE [Suspect]
     Active Substance: LACOSAMIDE
     Indication: Focal dyscognitive seizures
  2. LEVETIRACETAM [Suspect]
     Active Substance: LEVETIRACETAM
     Indication: Partial seizures with secondary generalisation
  3. CARBAMAZEPINE [Suspect]
     Active Substance: CARBAMAZEPINE
     Indication: Epilepsy
     Dosage: UNK
  4. BRIVARACETAM [Suspect]
     Active Substance: BRIVARACETAM
     Indication: Epilepsy
     Dosage: ABOVE 200 MILLIGRAM/DAY
  5. LAMOTRIGINE [Suspect]
     Active Substance: LAMOTRIGINE
     Indication: Epilepsy
     Dosage: 200 MILLIGRAM/DAY
  6. PERAMPANEL [Suspect]
     Active Substance: PERAMPANEL
     Indication: Epilepsy
     Dosage: 4 MILLIGRAM, QD
  7. VALPROATE [Suspect]
     Active Substance: VALPROIC ACID
     Indication: Partial seizures with secondary generalisation
     Dosage: 500 MILLIGRAM/DAY
  8. CENOBAMATE [Suspect]
     Active Substance: CENOBAMATE
     Indication: Partial seizures with secondary generalisation
  9. BRIVARACETAM [Suspect]
     Active Substance: BRIVARACETAM
     Indication: Epilepsy
     Dosage: BELOW 200 MILLIGRAM/DAY
  10. BRIVARACETAM [Suspect]
     Active Substance: BRIVARACETAM
     Indication: Epilepsy
     Dosage: 200 MILLIGRAM/DAY

REACTIONS (8)
  - Multiple-drug resistance [Unknown]
  - Gastrointestinal disorder [Recovered/Resolved]
  - Metamorphopsia [Unknown]
  - Epilepsy [Recovered/Resolved]
  - Rash [Unknown]
  - Emotional disorder [Recovering/Resolving]
  - Tremor [Unknown]
  - Irritability [Unknown]
